FAERS Safety Report 21029254 (Version 1)
Quarter: 2022Q3

REPORT INFORMATION
  Report Type: Spontaneous
  Country: US (occurrence: US)
  Receive Date: 20220630
  Receipt Date: 20220630
  Transmission Date: 20221027
  Serious: No
  Sender: FDA-Public Use
  Company Number: US-NOVARTISTESTPH-NVSC2022US148960

PATIENT
  Sex: Female

DRUGS (7)
  1. TASIGNA [Suspect]
     Active Substance: NILOTINIB
     Indication: Chronic myeloid leukaemia
     Dosage: 150 MG, BID (TAKE 2 CAPSULES BY MOUTH TWICE A DAY)
     Route: 048
     Dates: start: 20200221
  2. BUTALBITAL AND ACETAMINOPHEN [Concomitant]
     Active Substance: ACETAMINOPHEN\BUTALBITAL
     Indication: Product used for unknown indication
     Dosage: UNK
     Route: 065
  3. ESTRADIOL [Concomitant]
     Active Substance: ESTRADIOL
     Indication: Product used for unknown indication
     Dosage: UNK
     Route: 065
  4. ONDANSETRON [Concomitant]
     Active Substance: ONDANSETRON
     Indication: Product used for unknown indication
     Dosage: UNK
     Route: 065
  5. BROMOCRIPTINE MESYLATE [Concomitant]
     Active Substance: BROMOCRIPTINE MESYLATE
     Indication: Product used for unknown indication
     Dosage: 2.5 MG
     Route: 065
  6. FLUCONAZOLE [Concomitant]
     Active Substance: FLUCONAZOLE
     Indication: Product used for unknown indication
     Dosage: 200 MG
     Route: 065
  7. TEMAZEPAM [Concomitant]
     Active Substance: TEMAZEPAM
     Indication: Product used for unknown indication
     Dosage: UNK
     Route: 065

REACTIONS (1)
  - COVID-19 [Unknown]
